FAERS Safety Report 8814648 (Version 1)
Quarter: 2012Q4

REPORT INFORMATION
  Report Type: Spontaneous
  Country: NL (occurrence: None)
  Receive Date: 20120926
  Receipt Date: 20120926
  Transmission Date: 20130627
  Serious: Yes (Other)
  Sender: FDA-Public Use
  Company Number: 2012AP003011

PATIENT
  Sex: Female

DRUGS (3)
  1. MIRTAZAPINE [Suspect]
     Indication: DEPRESSIVE EPISODE
  2. OXAZEPAM (OXAZEPAM) [Concomitant]
  3. FLURAZEPAM (FLURAZEPAM) [Concomitant]

REACTIONS (4)
  - Type 2 diabetes mellitus [None]
  - Constipation [None]
  - Abdominal pain upper [None]
  - Toxicity to various agents [None]
